FAERS Safety Report 25374130 (Version 1)
Quarter: 2025Q2

REPORT INFORMATION
  Report Type: Report from Study
  Country: CA (occurrence: CA)
  Receive Date: 20250529
  Receipt Date: 20250529
  Transmission Date: 20250716
  Serious: Yes (Hospitalization, Other)
  Sender: ABBVIE
  Company Number: CA-ABBVIE-6198758

PATIENT
  Sex: Male

DRUGS (28)
  1. RINVOQ [Suspect]
     Active Substance: UPADACITINIB
     Indication: Rheumatoid arthritis
     Dosage: FORM STRENGTH: 15 MG
     Route: 048
     Dates: start: 20230910, end: 20250218
  2. ACETAMINOPHEN\TRAMADOL [Concomitant]
     Active Substance: ACETAMINOPHEN\TRAMADOL
     Indication: Product used for unknown indication
  3. HYDROCHLOROTHIAZIDE [Concomitant]
     Active Substance: HYDROCHLOROTHIAZIDE
     Indication: Product used for unknown indication
  4. QUETIAPINE [Concomitant]
     Active Substance: QUETIAPINE
     Indication: Product used for unknown indication
  5. ZOPICLONE [Concomitant]
     Active Substance: ZOPICLONE
     Indication: Product used for unknown indication
  6. APIXABAN [Concomitant]
     Active Substance: APIXABAN
     Indication: Product used for unknown indication
  7. ACETAMINOPHEN [Concomitant]
     Active Substance: ACETAMINOPHEN
     Indication: Pyrexia
     Dosage: FORM STRENGTH: 500 MILLIGRAM
     Route: 048
     Dates: end: 20250219
  8. ATORVASTATIN CALCIUM [Concomitant]
     Active Substance: ATORVASTATIN CALCIUM
     Indication: Product used for unknown indication
     Route: 048
  9. BISACODYL [Concomitant]
     Active Substance: BISACODYL
     Indication: Product used for unknown indication
     Route: 054
  10. DIMENHYDRINATE [Concomitant]
     Active Substance: DIMENHYDRINATE
     Indication: Nausea
     Dosage: FORM STRENGTH 50 MG?25 - 50 PRN
     Route: 048
     Dates: end: 20250218
  11. DIMENHYDRINATE [Concomitant]
     Active Substance: DIMENHYDRINATE
     Indication: Nausea
     Dosage: 25 - 50 MG?FORM STRENGTH: 50 MILLIGRAM ?PRN
     Route: 058
     Dates: end: 20250218
  12. FOLIC ACID [Concomitant]
     Active Substance: FOLIC ACID
     Indication: Product used for unknown indication
     Route: 048
  13. GLYCERIN [Concomitant]
     Active Substance: GLYCERIN
     Indication: Gastrointestinal motility disorder
     Dosage: PRN
     Route: 054
  14. HEPARIN SODIUM [Concomitant]
     Active Substance: HEPARIN SODIUM
     Indication: Product used for unknown indication
     Route: 042
  15. HYDROMORPHONE HYDROCHLORIDE [Concomitant]
     Active Substance: HYDROMORPHONE HYDROCHLORIDE
     Indication: Pain
  16. HYDROMORPHONE HYDROCHLORIDE [Concomitant]
     Active Substance: HYDROMORPHONE HYDROCHLORIDE
     Indication: Pain
     Dosage: 2 MG/MI,  1 MI 0.2 - 1 MG?PRN
     Route: 042
  17. HYDROXYCHLOROQUINE SULFATE [Concomitant]
     Active Substance: HYDROXYCHLOROQUINE SULFATE
     Indication: Product used for unknown indication
     Dosage: FORM STRENGTH: 200 MILLIGRAM
     Route: 048
  18. SODIUM CHLORIDE [Concomitant]
     Active Substance: SODIUM CHLORIDE
     Indication: Product used for unknown indication
  19. HEPARIN SODIUM AND DEXTROSE [Concomitant]
     Active Substance: HEPARIN SODIUM
     Indication: Product used for unknown indication
  20. LACTULOSE [Concomitant]
     Active Substance: LACTULOSE
     Indication: Product used for unknown indication
     Route: 048
  21. MELATONIN [Concomitant]
     Active Substance: MELATONIN
     Indication: Product used for unknown indication
     Route: 048
  22. POLYETHYLENE GLYCOL [Concomitant]
     Active Substance: POLYETHYLENE GLYCOL
     Indication: Product used for unknown indication
     Route: 048
  23. POLYETHYLENE GLYCOL [Concomitant]
     Active Substance: POLYETHYLENE GLYCOL
     Indication: Product used for unknown indication
     Route: 048
  24. QUETIAPINE FUMARATE [Concomitant]
     Active Substance: QUETIAPINE FUMARATE
     Indication: Product used for unknown indication
     Route: 048
  25. RAMIPRIL [Concomitant]
     Active Substance: RAMIPRIL
     Indication: Product used for unknown indication
     Route: 048
  26. SENNOSIDES [Concomitant]
     Active Substance: SENNOSIDES
     Indication: Gastrointestinal disorder
     Dosage: FORM STRENGTH: 12 MILLIGRAM ? PRN
     Route: 048
  27. SENNOSIDES [Concomitant]
     Active Substance: SENNOSIDES
     Indication: Gastrointestinal disorder
     Dosage: 1.7 MG/ML LIQ; 250 MI
     Route: 048
  28. ZOPICLONE [Concomitant]
     Active Substance: ZOPICLONE
     Indication: Insomnia
     Route: 048

REACTIONS (9)
  - Cerebrovascular accident [Unknown]
  - Thrombosis [Unknown]
  - Peripheral swelling [Unknown]
  - Joint swelling [Unknown]
  - Fibromyalgia [Unknown]
  - Arrhythmia [Unknown]
  - Atrial fibrillation [Unknown]
  - Cerebral artery embolism [Unknown]
  - Aphasia [Unknown]

NARRATIVE: CASE EVENT DATE: 20250301
